FAERS Safety Report 19742402 (Version 3)
Quarter: 2022Q2

REPORT INFORMATION
  Report Type: Spontaneous
  Country: IT (occurrence: IT)
  Receive Date: 20210824
  Receipt Date: 20220418
  Transmission Date: 20220721
  Serious: Yes (Other)
  Sender: FDA-Public Use
  Company Number: IT-VIIV HEALTHCARE LIMITED-IT2021GSK058521

PATIENT
  Age: 28 Year
  Sex: Male

DRUGS (21)
  1. ABACAVIR [Suspect]
     Active Substance: ABACAVIR
     Indication: HIV infection
     Dosage: 3 MONTH
  2. LAMIVUDINE [Suspect]
     Active Substance: LAMIVUDINE
     Indication: HIV infection
     Dosage: UNK
  3. LAMIVUDINE [Suspect]
     Active Substance: LAMIVUDINE
     Dosage: UNK
  4. LAMIVUDINE [Suspect]
     Active Substance: LAMIVUDINE
     Dosage: UNK
  5. LAMIVUDINE [Suspect]
     Active Substance: LAMIVUDINE
     Dosage: UNK
  6. DARUNAVIR [Suspect]
     Active Substance: DARUNAVIR
     Indication: HIV infection
     Dosage: UNK, QD
  7. DARUNAVIR [Suspect]
     Active Substance: DARUNAVIR
     Dosage: UNK
  8. DARUNAVIR [Suspect]
     Active Substance: DARUNAVIR
     Dosage: UNK
  9. RITONAVIR [Suspect]
     Active Substance: RITONAVIR
     Indication: Product used for unknown indication
     Dosage: UNK, QD
  10. RITONAVIR [Suspect]
     Active Substance: RITONAVIR
     Dosage: UNK
  11. TENOFOVIR DISOPROXIL [Suspect]
     Active Substance: TENOFOVIR DISOPROXIL
     Indication: HIV infection
     Dosage: UNK
  12. ATAZANAVIR SULFATE [Suspect]
     Active Substance: ATAZANAVIR SULFATE
     Indication: HIV infection
     Dosage: UNK
  13. DARUNAVIR\RITONAVIR [Suspect]
     Active Substance: DARUNAVIR\RITONAVIR
     Indication: HIV infection
     Dosage: UNK
  14. DARUNAVIR\RITONAVIR [Suspect]
     Active Substance: DARUNAVIR\RITONAVIR
     Dosage: UNK UNK, BID
  15. DARUNAVIR\RITONAVIR [Suspect]
     Active Substance: DARUNAVIR\RITONAVIR
     Dosage: UNK, QD
  16. DARUNAVIR\RITONAVIR [Suspect]
     Active Substance: DARUNAVIR\RITONAVIR
     Dosage: UNK, QD
  17. EMTRICITABINE [Suspect]
     Active Substance: EMTRICITABINE
     Indication: HIV infection
     Dosage: UNK
  18. RALTEGRAVIR [Suspect]
     Active Substance: RALTEGRAVIR
     Indication: HIV infection
     Dosage: 12 WEEK
  19. ZIDOVUDINE [Concomitant]
     Active Substance: ZIDOVUDINE
     Indication: HIV infection
     Dosage: UNK
  20. ZIDOVUDINE [Concomitant]
     Active Substance: ZIDOVUDINE
     Dosage: UNK
  21. ZIDOVUDINE [Concomitant]
     Active Substance: ZIDOVUDINE
     Dosage: UNK

REACTIONS (9)
  - Brain oedema [Recovered/Resolved]
  - CSF HIV escape syndrome [Recovered/Resolved]
  - Disease recurrence [Recovered/Resolved]
  - White matter lesion [Recovered/Resolved]
  - Nervous system disorder [Recovered/Resolved]
  - Headache [Recovered/Resolved]
  - Cerebral disorder [Recovered/Resolved]
  - Peripheral venous disease [Recovered/Resolved]
  - Virologic failure [Recovered/Resolved]
